FAERS Safety Report 4299934-0 (Version None)
Quarter: 2004Q1

REPORT INFORMATION
  Report Type: 
  Country: None (occurrence: None)
  Receive Date: 20040220
  Receipt Date: 20040212
  Transmission Date: 20041129
  Serious: Yes (Other)
  Sender: FDA-Public Use
  Company Number: PHBS2004CA02237

PATIENT
  Age: 31 Year
  Sex: Female

DRUGS (3)
  1. CLOZARIL [Suspect]
     Dosage: 300 MG/D
     Route: 048
  2. CLOZARIL [Suspect]
     Dosage: 100 MG/D
     Route: 048
  3. ZOLOFT [Concomitant]
     Route: 065

REACTIONS (6)
  - CHOKING [None]
  - DYSPNOEA [None]
  - LOGORRHOEA [None]
  - MUSCLE TWITCHING [None]
  - SALIVARY HYPERSECRETION [None]
  - WEIGHT INCREASED [None]
